FAERS Safety Report 16617315 (Version 1)
Quarter: 2019Q3

REPORT INFORMATION
  Report Type: Spontaneous
  Country: JP (occurrence: JP)
  Receive Date: 20190723
  Receipt Date: 20190723
  Transmission Date: 20191004
  Serious: Yes (Hospitalization, Other)
  Sender: FDA-Public Use
  Company Number: JP-PFIZER INC-2019306196

PATIENT
  Age: 19 Year
  Sex: Male

DRUGS (1)
  1. DALACIN S [Suspect]
     Active Substance: CLINDAMYCIN PHOSPHATE
     Indication: APPENDICITIS
     Dosage: UNK
     Route: 041

REACTIONS (1)
  - Myocarditis [Unknown]
